FAERS Safety Report 8574501 (Version 3)
Quarter: 2013Q1

REPORT INFORMATION
  Report Type: Spontaneous
  Country: JP (occurrence: None)
  Receive Date: 20120516
  Receipt Date: 20121204
  Transmission Date: 20140127
  Serious: Yes (Hospitalization)
  Sender: FDA-Public Use
  Company Number: 2012050075

PATIENT
  Age: 55 Year
  Sex: Female

DRUGS (5)
  1. TORSEMIDE [Suspect]
     Indication: FACE OEDEMA
     Dosage: 4 MG (4 MG, 1 IN 1 D), ORAL
     Route: 048
     Dates: start: 20120326, end: 20120405
  2. INCIVEK [Suspect]
     Indication: HEPATITIS C
     Dosage: 2250 MG, ORAL
     Route: 048
     Dates: start: 20120131, end: 20120327
  3. REBETOL [Suspect]
     Indication: HEPATITIS C
     Dosage: 1000 MG, ORAL
     Route: 048
     Dates: start: 20120131, end: 20120408
  4. PEGINTRON [Suspect]
     Indication: HEPATITIS C
     Dosage: SEE IMAGE
     Route: 042
     Dates: start: 20120131, end: 20120402
  5. MICARDIS (TELMISARTAN) [Concomitant]

REACTIONS (10)
  - Dizziness [None]
  - White blood cell count decreased [None]
  - Platelet count decreased [None]
  - Hypotension [None]
  - Haemoglobin decreased [None]
  - Nausea [None]
  - Vomiting [None]
  - Face oedema [None]
  - Pruritus [None]
  - Hypokalaemia [None]
